FAERS Safety Report 4619923-3 (Version None)
Quarter: 2005Q1

REPORT INFORMATION
  Report Type: 
  Country: None (occurrence: None)
  Receive Date: 20050321
  Receipt Date: 20050321
  Transmission Date: 20050727
  Serious: No
  Sender: FDA-Public Use
  Company Number: None

PATIENT
  Sex: Female
  Weight: 70.7611 kg

DRUGS (2)
  1. LOPRESSOR [Suspect]
     Indication: HYPERTENSION
     Dosage: 50 MG BID
  2. LOPRESSOR [Suspect]
     Indication: PALPITATIONS
     Dosage: 50 MG BID

REACTIONS (2)
  - PALPITATIONS [None]
  - PHARMACEUTICAL PRODUCT COMPLAINT [None]
